FAERS Safety Report 20819810 (Version 1)
Quarter: 2022Q2

REPORT INFORMATION
  Report Type: Report from Study
  Country: MX (occurrence: MX)
  Receive Date: 20220512
  Receipt Date: 20220512
  Transmission Date: 20220720
  Serious: Yes (Other)
  Sender: FDA-Public Use
  Company Number: MX-NOVARTISPH-NVSC2022MX105585

PATIENT
  Age: 63 Year
  Sex: Male

DRUGS (3)
  1. EXELON [Suspect]
     Active Substance: RIVASTIGMINE TARTRATE
     Indication: Dementia Alzheimer^s type
     Dosage: 4.6 MG, QD PATCH 5 (CM2) (3 WEEKS AGO)
     Route: 003
  2. EXELON [Suspect]
     Active Substance: RIVASTIGMINE TARTRATE
     Dosage: 4.6 MG, QD PATCH 5 (CM2) (3 WEEKS AGO)
     Route: 062
     Dates: start: 202202, end: 202203
  3. ELATEC [Concomitant]
     Indication: Peripheral venous disease
     Dosage: 1 DOSAGE FORM, QD
     Route: 048
     Dates: start: 2019

REACTIONS (8)
  - Cerebral atrophy [Unknown]
  - Disturbance in attention [Unknown]
  - Aggression [Not Recovered/Not Resolved]
  - Hypokinesia [Recovered/Resolved]
  - Tremor [Unknown]
  - Speech disorder [Unknown]
  - Memory impairment [Not Recovered/Not Resolved]
  - Off label use [Unknown]

NARRATIVE: CASE EVENT DATE: 20220201
